FAERS Safety Report 7107845-8 (Version None)
Quarter: 2010Q4

REPORT INFORMATION
  Report Type: 
  Country: None (occurrence: None)
  Receive Date: 20101117
  Receipt Date: 20101101
  Transmission Date: 20110411
  Serious: Yes (Hospitalization)
  Sender: FDA-Public Use
  Company Number: US-BAYER-201033649NA

PATIENT
  Age: 40 Year
  Sex: Female
  Weight: 81 kg

DRUGS (10)
  1. YAZ [Suspect]
     Indication: CONTRACEPTION
     Route: 048
     Dates: start: 20060701, end: 20070501
  2. YASMIN [Suspect]
     Indication: CONTRACEPTION
     Route: 048
     Dates: start: 20060701, end: 20070501
  3. MULTIVITAMIN WITH VITAMIN C [Concomitant]
  4. TYLENOL [Concomitant]
     Indication: PAIN
  5. IBUPROFEN [Concomitant]
     Indication: PAIN
  6. PHENAZOPYRIDINE HCL TAB [Concomitant]
  7. HYDROCODONE BITARTRATE AND ACETAMINOPHEN [Concomitant]
  8. SYNTHROID [Concomitant]
     Indication: THYROID DISORDER
     Dates: start: 20060901
  9. MERIDIA [Concomitant]
     Dates: start: 20070101, end: 20070901
  10. VICODIN [Concomitant]

REACTIONS (6)
  - ABDOMINAL PAIN [None]
  - ABDOMINAL PAIN UPPER [None]
  - CHOLECYSTITIS CHRONIC [None]
  - CHOLELITHIASIS [None]
  - CHOLESTEROSIS [None]
  - PROCEDURAL PAIN [None]
